FAERS Safety Report 7867279-5 (Version None)
Quarter: 2011Q4

REPORT INFORMATION
  Report Type: 
  Country: None (occurrence: None)
  Receive Date: 20111028
  Receipt Date: 20111019
  Transmission Date: 20120403
  Serious: Yes (Hospitalization, Other)
  Sender: FDA-Public Use
  Company Number: PHHY2011CH92617

PATIENT
  Age: 54 Year
  Sex: Male

DRUGS (3)
  1. CEFUROXIME AXETIL [Concomitant]
  2. ACETAMINOPHEN [Concomitant]
  3. AMOXICILLIN [Suspect]
     Indication: TOOTHACHE
     Dosage: 750 MG, TID
     Route: 048
     Dates: start: 20090926, end: 20091003

REACTIONS (8)
  - EOSINOPHILIA [None]
  - LEUKOCYTOSIS [None]
  - PALMAR ERYTHEMA [None]
  - INFLAMMATION [None]
  - RASH MACULO-PAPULAR [None]
  - SKIN LESION [None]
  - PRURITUS [None]
  - PYREXIA [None]
